FAERS Safety Report 23244878 (Version 1)
Quarter: 2023Q4

REPORT INFORMATION
  Report Type: Spontaneous
  Country: None (occurrence: US)
  Receive Date: 20231130
  Receipt Date: 20231130
  Transmission Date: 20240110
  Serious: No
  Sender: FDA-Public Use
  Company Number: US-STI Pharma LLC-2148830

PATIENT
  Age: 76 Year
  Sex: Female

DRUGS (4)
  1. ETHAMBUTOL HYDROCHLORIDE [Suspect]
     Active Substance: ETHAMBUTOL HYDROCHLORIDE
  2. AZITHROMYCIN [Concomitant]
     Active Substance: AZITHROMYCIN
  3. RIFABUTIN [Concomitant]
     Active Substance: RIFABUTIN
  4. CLOFAZIMINE [Concomitant]
     Active Substance: CLOFAZIMINE

REACTIONS (3)
  - Cough [Unknown]
  - Lung opacity [Unknown]
  - Pathogen resistance [Unknown]
